FAERS Safety Report 12708158 (Version 2)
Quarter: 2017Q1

REPORT INFORMATION
  Report Type: Spontaneous
  Country: US (occurrence: US)
  Receive Date: 20160901
  Receipt Date: 20170117
  Transmission Date: 20170428
  Serious: Yes (Other)
  Sender: FDA-Public Use
  Company Number: US-INSYS THERAPEUTICS, INC-INS201608-000414

PATIENT
  Age: 52 Year
  Sex: Female

DRUGS (3)
  1. SUBSYS [Suspect]
     Active Substance: FENTANYL
     Indication: PAIN
  2. SUBSYS [Suspect]
     Active Substance: FENTANYL
     Indication: BREAKTHROUGH PAIN
     Dates: start: 20150722
  3. FENTANYL TRANSDERMAL SYSTEM [Concomitant]
     Active Substance: FENTANYL

REACTIONS (9)
  - Constipation [Recovering/Resolving]
  - Dental caries [Unknown]
  - Impaired healing [Unknown]
  - Acrochordon [Unknown]
  - Tooth extraction [Unknown]
  - Tooth abscess [Unknown]
  - Nausea [Recovered/Resolved]
  - Tooth disorder [Unknown]
  - Oral infection [Unknown]

NARRATIVE: CASE EVENT DATE: 20150415
